FAERS Safety Report 20898377 (Version 2)
Quarter: 2023Q1

REPORT INFORMATION
  Report Type: Spontaneous
  Country: US (occurrence: US)
  Receive Date: 20220531
  Receipt Date: 20230113
  Transmission Date: 20230418
  Serious: Yes (Other)
  Sender: FDA-Public Use
  Company Number: US-STRIDES ARCOLAB LIMITED-2022SP006301

PATIENT
  Age: 4 Month
  Sex: Female

DRUGS (21)
  1. PREDNISOLONE [Suspect]
     Active Substance: PREDNISOLONE
     Indication: T-cell type acute leukaemia
     Dosage: UNK, CYCLICAL INDUCTION THERAPY
     Route: 065
     Dates: start: 202010
  2. PREDNISOLONE [Suspect]
     Active Substance: PREDNISOLONE
     Dosage: UNK, CYCLICAL INDUCTION INTENSIFICATION THERAPY
     Route: 065
     Dates: start: 202011
  3. METHOTREXATE [Suspect]
     Active Substance: METHOTREXATE
     Indication: T-cell type acute leukaemia
     Dosage: UNK, CYCLICAL INDUCTION THERAPY
     Route: 037
     Dates: start: 202010
  4. METHOTREXATE [Suspect]
     Active Substance: METHOTREXATE
     Dosage: UNK INDUCTION INTENSIFICATION THERAPY
     Route: 037
     Dates: start: 202011
  5. METHOTREXATE [Suspect]
     Active Substance: METHOTREXATE
     Dosage: UNK HIGH DOSE
     Route: 065
     Dates: start: 202011
  6. DEXAMETHASONE [Suspect]
     Active Substance: DEXAMETHASONE
     Indication: T-cell type acute leukaemia
     Dosage: UNK, CYCLICAL INDUCTION THERAPY
     Route: 065
     Dates: start: 202010
  7. DEXAMETHASONE [Suspect]
     Active Substance: DEXAMETHASONE
     Dosage: UNK INDUCTION INTENSIFICATION THERAPY
     Route: 065
     Dates: start: 202011
  8. ETOPOSIDE [Suspect]
     Active Substance: ETOPOSIDE
     Indication: T-cell type acute leukaemia
     Dosage: UNK HIGH DOSE
     Route: 065
     Dates: start: 202011
  9. HYDROCORTISONE [Suspect]
     Active Substance: HYDROCORTISONE
     Indication: T-cell type acute leukaemia
     Dosage: UNK, CYCLICAL INDUCTION THERAPY
     Route: 037
     Dates: start: 202010
  10. HYDROCORTISONE [Suspect]
     Active Substance: HYDROCORTISONE
     Dosage: UNK INDUCTION INTENSIFICATION THERAPY
     Route: 037
     Dates: start: 202011
  11. CYTARABINE [Suspect]
     Active Substance: CYTARABINE
     Indication: T-cell type acute leukaemia
     Dosage: UNK, CYCLICAL INDUCTION THERAPY
     Route: 065
     Dates: start: 202010
  12. CYTARABINE [Suspect]
     Active Substance: CYTARABINE
     Dosage: UNK INDUCTION INTENSIFICATION THERAPY
     Route: 065
     Dates: start: 202011
  13. CYTARABINE [Suspect]
     Active Substance: CYTARABINE
     Dosage: UNK INDUCTION THERAPY
     Route: 037
     Dates: start: 202010
  14. CYTARABINE [Suspect]
     Active Substance: CYTARABINE
     Dosage: UNK INDUCTION INTENSIFICATION THERAPY
     Route: 037
     Dates: start: 202011
  15. DAUNORUBICIN [Suspect]
     Active Substance: DAUNORUBICIN
     Indication: T-cell type acute leukaemia
     Dosage: UNK, CYCLICAL INDUCTION THERAPY
     Route: 065
     Dates: start: 202010
  16. DAUNORUBICIN [Suspect]
     Active Substance: DAUNORUBICIN
     Dosage: UNK INDUCTION INTENSIFICATION THERAPY
     Route: 065
     Dates: start: 202011
  17. PEGASPARGASE [Suspect]
     Active Substance: PEGASPARGASE
     Indication: T-cell type acute leukaemia
     Dosage: UNK, CYCLICAL INDUCTION THERAPY
     Route: 065
     Dates: start: 202010
  18. PEGASPARGASE [Suspect]
     Active Substance: PEGASPARGASE
     Dosage: UNK INDUCTION INTENSIFICATION THERAPY
     Route: 065
     Dates: start: 202011
  19. VINCRISTINE [Suspect]
     Active Substance: VINCRISTINE
     Indication: T-cell type acute leukaemia
     Dosage: UNK CYCLICAL INDUCTION THERAPY
     Route: 065
     Dates: start: 202010
  20. VINCRISTINE [Suspect]
     Active Substance: VINCRISTINE
     Dosage: UNK INDUCTION INTENSIFICATION THERAPY
     Route: 065
     Dates: start: 202011
  21. CYCLOPHOSPHAMIDE [Suspect]
     Active Substance: CYCLOPHOSPHAMIDE
     Indication: T-cell type acute leukaemia
     Dosage: UNK
     Route: 065
     Dates: start: 202011

REACTIONS (5)
  - Neutropenia [Not Recovered/Not Resolved]
  - Bacteraemia [Unknown]
  - Mucosal inflammation [Unknown]
  - Pyrexia [Unknown]
  - Off label use [Unknown]

NARRATIVE: CASE EVENT DATE: 20200101
